FAERS Safety Report 7661825-2 (Version None)
Quarter: 2011Q3

REPORT INFORMATION
  Report Type: 
  Country: None (occurrence: None)
  Receive Date: 20110805
  Receipt Date: 20101213
  Transmission Date: 20111222
  Serious: No
  Sender: FDA-Public Use
  Company Number: US-ABBOTT-10P-163-0691081-00

PATIENT
  Sex: Male
  Weight: 90.8 kg

DRUGS (2)
  1. CARDISPERAL [Concomitant]
     Indication: PRODUCT USED FOR UNKNOWN INDICATION
  2. NIASPAN [Suspect]
     Indication: BLOOD TRIGLYCERIDES INCREASED
     Dosage: AT BEDTIME
     Dates: start: 20101209

REACTIONS (4)
  - HEART RATE INCREASED [None]
  - MYALGIA [None]
  - PAIN [None]
  - INFLUENZA LIKE ILLNESS [None]
